FAERS Safety Report 4492557-X (Version None)
Quarter: 2004Q4

REPORT INFORMATION
  Report Type: 
  Country: None (occurrence: None)
  Receive Date: 20041102
  Receipt Date: 20041102
  Transmission Date: 20050328
  Serious: Yes (Hospitalization)
  Sender: FDA-Public Use
  Company Number: None

PATIENT
  Age: 69 Year
  Sex: Male
  Weight: 102.9665 kg

DRUGS (17)
  1. ROFECOXIB [Suspect]
     Indication: ABDOMINAL PAIN UPPER
     Dosage: 25 MG DAILY ORAL
     Route: 048
     Dates: start: 20040212, end: 20040214
  2. FUROSEMIDE [Concomitant]
  3. METOPROLOL SUCCINATE [Concomitant]
  4. PANTOPRAZOLE [Concomitant]
  5. ISOSORBIDE DINITRATE [Concomitant]
  6. WARFARIN [Concomitant]
  7. SIMVASTATIN [Concomitant]
  8. NORTRIPTYLINE HCL [Concomitant]
  9. HYDROCODONE/ACETAMINOPHEN [Concomitant]
  10. TRAMADOL [Concomitant]
  11. DIPHENHYDRAMINE [Concomitant]
  12. ATROVENT [Concomitant]
  13. FLUTICASONE ROAL INHALER [Concomitant]
  14. OXYCODONE [Concomitant]
  15. ONDANSETRON [Concomitant]
  16. BISACODYL [Concomitant]
  17. MAGNESIUM HYDROXIDE TAB [Concomitant]

REACTIONS (5)
  - ALANINE AMINOTRANSFERASE INCREASED [None]
  - ASPARTATE AMINOTRANSFERASE INCREASED [None]
  - BILIRUBIN CONJUGATED INCREASED [None]
  - BLOOD BILIRUBIN INCREASED [None]
  - HEPATOCELLULAR DAMAGE [None]
